FAERS Safety Report 6846312-3 (Version None)
Quarter: 2010Q3

REPORT INFORMATION
  Report Type: 
  Country: None (occurrence: None)
  Receive Date: 20100715
  Receipt Date: 20070918
  Transmission Date: 20110219
  Serious: No
  Sender: FDA-Public Use
  Company Number: US-PFIZER INC-2007077805

PATIENT
  Sex: Female
  Weight: 77.3 kg

DRUGS (4)
  1. CHANTIX [Suspect]
     Indication: SMOKING CESSATION THERAPY
     Dates: start: 20061001, end: 20070701
  2. GENERAL NUTRIENTS [Concomitant]
  3. VITAMINS [Concomitant]
  4. ALBUTEROL [Concomitant]

REACTIONS (1)
  - DEPRESSION [None]
